FAERS Safety Report 24268753 (Version 1)
Quarter: 2024Q3

REPORT INFORMATION
  Report Type: Spontaneous
  Country: PH (occurrence: PH)
  Receive Date: 20240830
  Receipt Date: 20240830
  Transmission Date: 20241017
  Serious: Yes (Life-Threatening, Hospitalization, Other)
  Sender: PFIZER
  Company Number: PH-PFIZER INC-202400242271

PATIENT
  Age: 24 Year
  Sex: Female

DRUGS (8)
  1. LINEZOLID [Interacting]
     Active Substance: LINEZOLID
     Indication: Tuberculosis
     Dosage: 1 TAB/DAY
     Route: 048
     Dates: start: 2020
  2. BEDAQUILINE [Interacting]
     Active Substance: BEDAQUILINE
     Indication: Tuberculosis
     Dosage: 4 TABLETS 3 X A WEEK
     Route: 048
     Dates: start: 2020
  3. PROTIONAMIDE [Interacting]
     Active Substance: PROTIONAMIDE
     Indication: Tuberculosis
     Dosage: 2 CAPS/DAY
     Route: 048
     Dates: start: 2020
  4. CYCLOSPORINE [Interacting]
     Active Substance: CYCLOSPORINE
     Indication: Tuberculosis
     Dosage: 2 CAPS/DAY
     Route: 048
     Dates: start: 2020
  5. PYRIDOXINE [Interacting]
     Active Substance: PYRIDOXINE
     Indication: Tuberculosis
     Dosage: 4 TABS/DAY
     Route: 048
     Dates: start: 2020
  6. DELAMANID [Interacting]
     Active Substance: DELAMANID
     Indication: Tuberculosis
     Dosage: UNK
  7. REMDESIVIR [Interacting]
     Active Substance: REMDESIVIR
     Indication: COVID-19 pneumonia
     Dosage: 200 MG, 1X/DAY
     Dates: start: 2020
  8. DEXAMETHASONE [Concomitant]
     Active Substance: DEXAMETHASONE
     Dosage: UNK

REACTIONS (1)
  - Drug interaction [Unknown]
